FAERS Safety Report 20983639 (Version 3)
Quarter: 2022Q2

REPORT INFORMATION
  Report Type: Report from Study
  Country: US (occurrence: US)
  Receive Date: 20220620
  Receipt Date: 20220622
  Transmission Date: 20220721
  Serious: Yes (Death)
  Sender: FDA-Public Use
  Company Number: US-ABBVIE-22K-163-4439462-00

PATIENT
  Age: 82 Year
  Sex: Male
  Weight: 65.830 kg

DRUGS (13)
  1. DUOPA [Suspect]
     Active Substance: CARBIDOPA\LEVODOPA
     Indication: Parkinson^s disease
     Route: 050
     Dates: start: 20171218, end: 20220420
  2. DUOPA [Suspect]
     Active Substance: CARBIDOPA\LEVODOPA
  3. TOLTERODINE TARTRATE [Concomitant]
     Active Substance: TOLTERODINE TARTRATE
     Indication: Product used for unknown indication
     Route: 048
     Dates: end: 202205
  4. MELOXICAM [Concomitant]
     Active Substance: MELOXICAM
     Indication: Product used for unknown indication
     Route: 048
     Dates: end: 202205
  5. PRAVASTATIN [Concomitant]
     Active Substance: PRAVASTATIN
     Indication: Product used for unknown indication
     Route: 048
     Dates: end: 202205
  6. ALENDRONATE SODIUM [Concomitant]
     Active Substance: ALENDRONATE SODIUM
     Indication: Product used for unknown indication
     Route: 048
     Dates: end: 202205
  7. CARBIDOPA AND LEVODOPA [Concomitant]
     Active Substance: CARBIDOPA\LEVODOPA
     Indication: Product used for unknown indication
     Dosage: 25-100 MG
     Route: 048
     Dates: end: 202205
  8. CEROVITE SENIOR [Concomitant]
     Indication: Product used for unknown indication
     Route: 048
     Dates: end: 202205
  9. CALCIUM\CHOLECALCIFEROL [Concomitant]
     Active Substance: CALCIUM\CHOLECALCIFEROL
     Indication: Product used for unknown indication
     Dosage: 600-500MG
     Route: 048
     Dates: end: 202205
  10. LEVOTHYROXINE [Concomitant]
     Active Substance: LEVOTHYROXINE
     Indication: Product used for unknown indication
     Route: 048
     Dates: end: 202205
  11. VITAMIN C [Concomitant]
     Active Substance: ASCORBIC ACID
     Indication: Product used for unknown indication
     Route: 048
     Dates: end: 202205
  12. MORPHINE [Concomitant]
     Active Substance: MORPHINE
     Indication: Pain
  13. LORAZEPAM [Concomitant]
     Active Substance: LORAZEPAM
     Indication: Anxiety

REACTIONS (6)
  - Parkinson^s disease [Fatal]
  - Cardiac failure [Fatal]
  - Gait inability [Not Recovered/Not Resolved]
  - Balance disorder [Not Recovered/Not Resolved]
  - Increased bronchial secretion [Unknown]
  - Hallucination [Recovering/Resolving]

NARRATIVE: CASE EVENT DATE: 20220101
